FAERS Safety Report 8770149 (Version 1)
Quarter: 2012Q4

REPORT INFORMATION
  Report Type: 
  Country: AT (occurrence: AT)
  Receive Date: 20120906
  Receipt Date: 20120906
  Transmission Date: 20130627
  Serious: Yes (Other)
  Sender: FDA-Public Use
  Company Number: AT-JNJFOC-20120902215

PATIENT
  Age: 39 Year
  Sex: Female
  Weight: 120 kg

DRUGS (3)
  1. XARELTO [Suspect]
     Indication: EMBOLISM VENOUS
     Route: 048
     Dates: start: 20120726, end: 20120727
  2. XARELTO [Suspect]
     Indication: DEEP VEIN THROMBOSIS
     Route: 048
     Dates: start: 20120726, end: 20120727
  3. EUTHYROX [Concomitant]
     Indication: HYPOTHYROIDISM

REACTIONS (2)
  - Hypersensitivity [Recovered/Resolved]
  - Rash generalised [Recovered/Resolved]
